FAERS Safety Report 15183413 (Version 1)
Quarter: 2018Q3

REPORT INFORMATION
  Report Type: Spontaneous
  Country: US (occurrence: US)
  Receive Date: 20180723
  Receipt Date: 20180723
  Transmission Date: 20181010
  Serious: No
  Sender: FDA-Public Use
  Company Number: US-SA-2018SA193563

PATIENT
  Age: 59 Year
  Sex: Male

DRUGS (2)
  1. PRALUENT [Suspect]
     Active Substance: ALIROCUMAB
     Route: 058
  2. ALIROCUMAB PREFILLED PEN [Suspect]
     Active Substance: ALIROCUMAB
     Route: 058

REACTIONS (3)
  - Arthralgia [Unknown]
  - Myalgia [Unknown]
  - Chromaturia [Unknown]

NARRATIVE: CASE EVENT DATE: 20180708
